FAERS Safety Report 6570462-2 (Version None)
Quarter: 2010Q1

REPORT INFORMATION
  Report Type: 
  Country: None (occurrence: None)
  Receive Date: 20100204
  Receipt Date: 20090715
  Transmission Date: 20100710
  Serious: No
  Sender: FDA-Public Use
  Company Number: A0798288A

PATIENT
  Age: 71 Year
  Sex: Female

DRUGS (5)
  1. ARIXTRA [Suspect]
     Indication: PROPHYLAXIS
     Dosage: 2.5U UNKNOWN
     Route: 058
     Dates: start: 20090713
  2. FOLIC ACID [Concomitant]
  3. PRILOSEC [Concomitant]
  4. ZOFRAN [Concomitant]
  5. TYLENOL-500 [Concomitant]

REACTIONS (1)
  - PLATELET COUNT DECREASED [None]
